FAERS Safety Report 6870015-2 (Version None)
Quarter: 2010Q3

REPORT INFORMATION
  Report Type: 
  Country: None (occurrence: None)
  Receive Date: 20100722
  Receipt Date: 20091027
  Transmission Date: 20110219
  Serious: No
  Sender: FDA-Public Use
  Company Number: US-PFIZER INC-2008074549

PATIENT
  Sex: Female
  Weight: 72.7 kg

DRUGS (2)
  1. CHANTIX [Suspect]
     Indication: SMOKING CESSATION THERAPY
     Dosage: 0.5 MG, 2X/DAY
     Route: 048
     Dates: start: 20080822, end: 20081114
  2. CENTRUM SILVER [Concomitant]
     Dosage: DAILY

REACTIONS (11)
  - BLADDER PROLAPSE [None]
  - CONSTIPATION [None]
  - FLATULENCE [None]
  - FREQUENT BOWEL MOVEMENTS [None]
  - GASTROENTERITIS VIRAL [None]
  - NASOPHARYNGITIS [None]
  - NAUSEA [None]
  - OEDEMA PERIPHERAL [None]
  - URINARY RETENTION [None]
  - VOMITING [None]
  - WEIGHT INCREASED [None]
